FAERS Safety Report 5012575-2 (Version None)
Quarter: 2006Q2

REPORT INFORMATION
  Report Type: 
  Country: None (occurrence: None)
  Receive Date: 20060414
  Receipt Date: 20060112
  Transmission Date: 20061013
  Serious: No
  Sender: FDA-Public Use
  Company Number: 2006SP000218

PATIENT
  Age: 45 Year
  Sex: Male
  Weight: 86.1834 kg

DRUGS (9)
  1. LUNESTA [Suspect]
     Indication: INSOMNIA
     Dosage: 2 MG;1X;ORAL
     Route: 048
     Dates: start: 20060104, end: 20060104
  2. THYROID TAB [Concomitant]
  3. DESMOPRESSIN ACETATE [Concomitant]
  4. HYDROCORTISONE [Concomitant]
  5. AVAPRO [Concomitant]
  6. ATORVASTATIN CALCIUM [Concomitant]
  7. WELLBUTRIN SR [Concomitant]
  8. TESTOSTERONE [Concomitant]
  9. ACETYLSALICYLIC ACID SRT [Concomitant]

REACTIONS (1)
  - DYSGEUSIA [None]
